FAERS Safety Report 8519524-0 (Version None)
Quarter: 2012Q3

REPORT INFORMATION
  Report Type: 
  Country: None (occurrence: None)
  Receive Date: 20120718
  Receipt Date: 20120706
  Transmission Date: 20120928
  Serious: Yes (Hospitalization, Other)
  Sender: FDA-Public Use
  Company Number: US-ELI_LILLY_AND_COMPANY-US201207002036

PATIENT
  Sex: Male
  Weight: 77.551 kg

DRUGS (6)
  1. LISINOPRIL                              /USA/ [Concomitant]
     Indication: CARDIAC DISORDER
     Dosage: UNK
     Route: 048
  2. ASPIRIN                                 /USA/ [Concomitant]
     Indication: CARDIAC DISORDER
     Dosage: 81 MG, QD
     Route: 048
  3. WARFARIN SODIUM [Concomitant]
     Indication: CARDIAC DISORDER
     Dosage: UNK
     Route: 048
  4. CRESTOR [Concomitant]
     Indication: BLOOD CHOLESTEROL
     Dosage: UNK
     Route: 048
  5. SOTALOL HCL [Concomitant]
     Indication: CARDIAC DISORDER
     Dosage: UNK
     Route: 048
  6. BYETTA [Suspect]
     Indication: TYPE 2 DIABETES MELLITUS
     Dosage: 10 UG, BID
     Route: 058

REACTIONS (5)
  - DYSPNOEA [None]
  - BLOOD GLUCOSE INCREASED [None]
  - DIVERTICULITIS [None]
  - MALAISE [None]
  - CARDIAC ABLATION [None]
